FAERS Safety Report 24440854 (Version 1)
Quarter: 2024Q4

REPORT INFORMATION
  Report Type: Spontaneous
  Country: FR (occurrence: FR)
  Receive Date: 20241016
  Receipt Date: 20241016
  Transmission Date: 20250115
  Serious: Yes (Death, Hospitalization, Other)
  Sender: AUROBINDO
  Company Number: FR-AUROBINDO-AUR-APL-2017-18932

PATIENT
  Age: 76 Year
  Sex: Female

DRUGS (4)
  1. MYCOPHENOLATE MOFETIL [Suspect]
     Active Substance: MYCOPHENOLATE MOFETIL
     Indication: Pemphigoid
     Dosage: 1 GRAM, TWO TIMES A DAY
     Route: 065
  2. MYCOPHENOLATE MOFETIL [Suspect]
     Active Substance: MYCOPHENOLATE MOFETIL
     Dosage: 2 GRAM, ONCE A DAY (2 G, DAILY STARTED ON MONTH 08)
     Route: 065
  3. CLOBETASOL PROPIONATE [Suspect]
     Active Substance: CLOBETASOL PROPIONATE
     Indication: Pemphigoid
     Dosage: 30 MILLIGRAM, ONCE A DAY (30 G, DAILY)
     Route: 061
  4. CLOBETASOL PROPIONATE [Suspect]
     Active Substance: CLOBETASOL PROPIONATE
     Dosage: 10 MILLIGRAM, ONCE A DAY (10 G, DAILY)
     Route: 061

REACTIONS (12)
  - Necrotising fasciitis [Fatal]
  - Septic shock [Fatal]
  - Staphylococcal infection [Not Recovered/Not Resolved]
  - Diabetes mellitus [Unknown]
  - Streptococcal infection [Unknown]
  - Neutrophil count increased [Unknown]
  - Pemphigoid [Unknown]
  - Beta haemolytic streptococcal infection [Unknown]
  - White blood cell count increased [Unknown]
  - C-reactive protein increased [Unknown]
  - Rebound effect [Unknown]
  - Off label use [Unknown]
